FAERS Safety Report 7881694-5 (Version None)
Quarter: 2011Q4

REPORT INFORMATION
  Report Type: 
  Country: None (occurrence: None)
  Receive Date: 20111101
  Receipt Date: 20110524
  Transmission Date: 20120403
  Serious: No
  Sender: FDA-Public Use
  Company Number: US-AMGEN-USASP2011027023

PATIENT
  Age: 51 Year
  Sex: Female

DRUGS (3)
  1. ENBREL [Suspect]
     Indication: PSORIATIC ARTHROPATHY
     Dosage: 50 MG, QWK
     Dates: start: 20110513
  2. TREXALL [Concomitant]
     Dosage: 1 MG, QWK
     Dates: start: 20110201
  3. ENBREL [Suspect]
     Indication: PSORIASIS

REACTIONS (5)
  - OEDEMA PERIPHERAL [None]
  - OEDEMA [None]
  - INDURATION [None]
  - PAIN IN EXTREMITY [None]
  - HEADACHE [None]
